FAERS Safety Report 6774215-1 (Version None)
Quarter: 2010Q2

REPORT INFORMATION
  Report Type: 
  Country: None (occurrence: None)
  Receive Date: 20100617
  Receipt Date: 20100607
  Transmission Date: 20101027
  Serious: Yes (Hospitalization)
  Sender: FDA-Public Use
  Company Number: DE-BAYER-201026009GPV

PATIENT
  Age: 77 Year
  Sex: Male
  Weight: 80 kg

DRUGS (4)
  1. SORAFENIB [Suspect]
     Indication: HEPATIC NEOPLASM MALIGNANT
     Dosage: TOTAL DAILY DOSE: 800 MG  UNIT DOSE: 200 MG
     Route: 048
     Dates: start: 20090907, end: 20091124
  2. SORAFENIB [Suspect]
     Route: 048
     Dates: start: 20091124, end: 20100215
  3. SORAFENIB [Suspect]
     Route: 048
     Dates: start: 20100215, end: 20100507
  4. DIABETIC TREATMENT [Concomitant]
     Indication: DIABETES MELLITUS
     Route: 048

REACTIONS (5)
  - DIARRHOEA [None]
  - HYPOCALCAEMIA [None]
  - HYPOMAGNESAEMIA [None]
  - MALABSORPTION [None]
  - SKIN DISORDER [None]
